FAERS Safety Report 21667476 (Version 2)
Quarter: 2022Q4

REPORT INFORMATION
  Report Type: Spontaneous
  Country: MY (occurrence: MY)
  Receive Date: 20221201
  Receipt Date: 20221216
  Transmission Date: 20230113
  Serious: Yes (Hospitalization)
  Sender: FDA-Public Use
  Company Number: MY-TEVA-2022-MY-2830901

PATIENT
  Age: 61 Year
  Sex: Female

DRUGS (8)
  1. BETAMETHASONE VALERATE [Suspect]
     Active Substance: BETAMETHASONE VALERATE
     Indication: Pityriasis rubra pilaris
     Dosage: .2 PERCENT DAILY; TO BE APPLIED ALL OVER HER BODY
     Route: 061
  2. CLOBETASONE [Suspect]
     Active Substance: CLOBETASONE
     Indication: Pityriasis rubra pilaris
     Dosage: .1 PERCENT DAILY; TO BE APPLIED ON FACE
     Route: 061
  3. CLARITHROMYCIN [Suspect]
     Active Substance: CLARITHROMYCIN
     Indication: Antibiotic therapy
     Dosage: 1000 MILLIGRAM DAILY;
     Route: 048
  4. JANUMET [Concomitant]
     Active Substance: METFORMIN HYDROCHLORIDE\SITAGLIPTIN PHOSPHATE
     Indication: Diabetes mellitus
     Route: 048
  5. GLICLAZIDE [Concomitant]
     Active Substance: GLICLAZIDE
     Indication: Diabetes mellitus
     Route: 065
  6. ATORVASTATIN [Concomitant]
     Active Substance: ATORVASTATIN
     Indication: Dyslipidaemia
     Route: 065
  7. LORATADINE [Concomitant]
     Active Substance: LORATADINE
     Indication: Product used for unknown indication
     Route: 065
  8. BUDESONIDE [Concomitant]
     Active Substance: BUDESONIDE
     Indication: Product used for unknown indication
     Dosage: SPRAY
     Route: 045

REACTIONS (3)
  - Dermatitis exfoliative generalised [Unknown]
  - Drug hypersensitivity [Unknown]
  - Drug ineffective [Unknown]
